FAERS Safety Report 8937198 (Version 1)
Quarter: 2012Q4

REPORT INFORMATION
  Report Type: Spontaneous
  Country: US (occurrence: None)
  Receive Date: 20121128
  Receipt Date: 20121128
  Transmission Date: 20130627
  Serious: Yes (Hospitalization)
  Sender: FDA-Public Use
  Company Number: None

PATIENT
  Age: 81 Year
  Sex: Male
  Weight: 95 kg

DRUGS (18)
  1. ASA [Suspect]
     Indication: CORONARY ARTERY DISEASE
     Dosage: ec 325mg daily po
chronic
     Route: 048
  2. LIPITOR [Concomitant]
  3. DALIRESP [Concomitant]
  4. NORVASC [Concomitant]
  5. RANEXA [Concomitant]
  6. SPIRIVA [Concomitant]
  7. CARDIZEM [Concomitant]
  8. INDUR [Concomitant]
  9. CENTRUM SILVER [Concomitant]
  10. CARAFATE [Concomitant]
  11. DUONEB [Concomitant]
  12. BROVANA [Concomitant]
  13. BUMEX [Concomitant]
  14. KCL [Concomitant]
  15. MUCINEX [Concomitant]
  16. FES04 [Concomitant]
  17. GLUCOTROL [Concomitant]
  18. BUDERONIDE [Concomitant]

REACTIONS (2)
  - Transfusion [None]
  - Blood count abnormal [None]
